FAERS Safety Report 6995425-4 (Version None)
Quarter: 2010Q3

REPORT INFORMATION
  Report Type: 
  Country: None (occurrence: None)
  Receive Date: 20100917
  Receipt Date: 20090108
  Transmission Date: 20110219
  Serious: Yes (Other)
  Sender: FDA-Public Use
  Company Number: US-WYE-H04947508

PATIENT
  Sex: Female

DRUGS (4)
  1. PREMPRO [Suspect]
  2. CYCRIN [Suspect]
  3. PROVERA [Suspect]
  4. PREMARIN [Suspect]

REACTIONS (1)
  - BREAST CANCER [None]
